FAERS Safety Report 9091122 (Version 1)
Quarter: 2013Q1

REPORT INFORMATION
  Report Type: Spontaneous
  Country: US (occurrence: US)
  Receive Date: 20130131
  Receipt Date: 20130131
  Transmission Date: 20140127
  Serious: No
  Sender: FDA-Public Use
  Company Number: US-009507513-1301USA014318

PATIENT
  Age: 9 Year
  Sex: Male

DRUGS (1)
  1. DULERA [Suspect]
     Dosage: INHALATION
     Dates: start: 2011

REACTIONS (2)
  - Drug administered to patient of inappropriate age [Unknown]
  - No adverse event [Unknown]
